FAERS Safety Report 10133568 (Version 3)
Quarter: 2014Q2

REPORT INFORMATION
  Report Type: Report from Study
  Country: HU (occurrence: HU)
  Receive Date: 20140428
  Receipt Date: 20140515
  Transmission Date: 20141212
  Serious: Yes (Hospitalization)
  Sender: FDA-Public Use
  Company Number: HU-VERTEX PHARMACEUTICALS INC-2014-001091

PATIENT
  Age: 60 Year
  Sex: Female

DRUGS (1)
  1. TELAPREVIR [Suspect]
     Indication: HEPATITIS C
     Dosage: 1125 MG, UNK
     Dates: start: 20140212

REACTIONS (11)
  - Blood potassium decreased [Not Recovered/Not Resolved]
  - Red blood cell count decreased [Unknown]
  - Hypotension [Not Recovered/Not Resolved]
  - Mood altered [Unknown]
  - Dizziness [Recovering/Resolving]
  - Malaise [Unknown]
  - Asthenia [Recovering/Resolving]
  - White blood cell count decreased [Unknown]
  - Rash erythematous [Recovering/Resolving]
  - Nausea [Recovering/Resolving]
  - Diarrhoea [Recovering/Resolving]
